FAERS Safety Report 5654545-7 (Version None)
Quarter: 2008Q1

REPORT INFORMATION
  Report Type: 
  Country: None (occurrence: None)
  Receive Date: 20080214
  Receipt Date: 20071203
  Transmission Date: 20080703
  Serious: Yes (Other)
  Sender: FDA-Public Use
  Company Number: WAES 0712USA01147

PATIENT
  Age: 70 Year
  Sex: Female

DRUGS (9)
  1. JANUVIA [Suspect]
     Indication: TYPE 2 DIABETES MELLITUS
     Dosage: 100 MG/DAILY/PO
     Route: 048
     Dates: start: 20070927, end: 20070101
  2. ANTARA [Concomitant]
  3. ATIVAN [Concomitant]
  4. GLUCOTROL [Concomitant]
  5. NEXIUM [Concomitant]
  6. PRAVACHOL [Concomitant]
  7. LISINOPRIL [Concomitant]
  8. MECLIZINE [Concomitant]
  9. QUININE SULFATE [Concomitant]

REACTIONS (1)
  - STEVENS-JOHNSON SYNDROME [None]
